FAERS Safety Report 10078716 (Version 1)
Quarter: 2014Q2

REPORT INFORMATION
  Report Type: Spontaneous
  Country: CA (occurrence: None)
  Receive Date: 20140411
  Receipt Date: 20140411
  Transmission Date: 20141212
  Serious: Yes (Other)
  Sender: FDA-Public Use
  Company Number: SYM-2014-19582

PATIENT
  Age: 49 Year
  Sex: Male

DRUGS (5)
  1. FLUOROURACIL (FLUOROURACIL) (FLUOROURACIL) [Suspect]
     Indication: ADENOCARCINOMA GASTRIC
  2. CISPLATIN [Suspect]
     Indication: ADENOCARCINOMA GASTRIC
  3. DCETAXEL (DOCETAXEL) (DOCETAXEL) [Concomitant]
  4. THERAPEUTIC RADIOPHARMACEUTICALS (THERAPEUTIC RADIOPHARMACEUTICALS) (NULL) [Concomitant]
  5. PROTON PUMP INHIBITORS (PROTON PUMP INHIBITORS) (NULL) [Concomitant]

REACTIONS (4)
  - Peripheral sensory neuropathy [None]
  - Condition aggravated [None]
  - Mucosal inflammation [None]
  - Gastric haemorrhage [None]
